FAERS Safety Report 17162262 (Version 1)
Quarter: 2019Q4

REPORT INFORMATION
  Report Type: Spontaneous
  Country: US (occurrence: US)
  Receive Date: 20191216
  Receipt Date: 20191216
  Transmission Date: 20200122
  Serious: No
  Sender: FDA-Public Use
  Company Number: None

PATIENT

DRUGS (1)
  1. GENERIC BACTRIM [Suspect]
     Active Substance: SULFAMETHOXAZOLE\TRIMETHOPRIM
     Indication: SINUSITIS
     Route: 048
     Dates: start: 20191206, end: 20191209

REACTIONS (5)
  - Nipple pain [None]
  - Skin discolouration [None]
  - Skin exfoliation [None]
  - Eye inflammation [None]
  - Penis disorder [None]

NARRATIVE: CASE EVENT DATE: 20191211
